FAERS Safety Report 19133594 (Version 1)
Quarter: 2021Q2

REPORT INFORMATION
  Report Type: Spontaneous
  Country: US (occurrence: US)
  Receive Date: 20210414
  Receipt Date: 20210414
  Transmission Date: 20210717
  Serious: Yes (Life-Threatening)
  Sender: FDA-Public Use
  Company Number: None

PATIENT
  Age: 7 Year
  Sex: Female
  Weight: 22.05 kg

DRUGS (4)
  1. ZOLOFT [Concomitant]
     Active Substance: SERTRALINE HYDROCHLORIDE
  2. FLINTSTONES MULTI VITAMIN [Concomitant]
  3. MONTELUKAST [Suspect]
     Active Substance: MONTELUKAST SODIUM
     Indication: SEASONAL ALLERGY
     Dosage: ?          QUANTITY:1 TABLET(S);?
     Route: 048
     Dates: start: 20151030, end: 20210103
  4. VITAMIN C [Concomitant]
     Active Substance: ASCORBIC ACID

REACTIONS (7)
  - Morbid thoughts [None]
  - Product complaint [None]
  - Disturbance in social behaviour [None]
  - Anger [None]
  - Paediatric autoimmune neuropsychiatric disorders associated with streptococcal infection [None]
  - Suicidal ideation [None]
  - Major depression [None]

NARRATIVE: CASE EVENT DATE: 20210102
